FAERS Safety Report 15796246 (Version 1)
Quarter: 2019Q1

REPORT INFORMATION
  Report Type: Spontaneous
  Country: GB (occurrence: GB)
  Receive Date: 20190108
  Receipt Date: 20190108
  Transmission Date: 20190417
  Serious: Yes (Hospitalization, Other)
  Sender: FDA-Public Use
  Company Number: GB-TEVA-2019-GB-995689

PATIENT
  Age: 78 Year
  Sex: Male

DRUGS (14)
  1. RAMIPRIL. [Suspect]
     Active Substance: RAMIPRIL
     Indication: HYPERTENSION
     Dosage: 2.5 MILLIGRAM DAILY;
     Route: 048
     Dates: end: 20181025
  2. ATORVASTATIN CALCIUM. [Concomitant]
     Active Substance: ATORVASTATIN CALCIUM
  3. AMITRIPTYLINE [Concomitant]
     Active Substance: AMITRIPTYLINE
     Route: 065
  4. COCODAMOL [Concomitant]
     Active Substance: ACETAMINOPHEN\CODEINE PHOSPHATE
     Dosage: 30/500
     Route: 065
  5. GLUCOPHAGE XR [Suspect]
     Active Substance: METFORMIN HYDROCHLORIDE
     Indication: TYPE 2 DIABETES MELLITUS
     Dosage: 4 DOSAGE FORMS DAILY; AT TEATIME
     Route: 048
     Dates: end: 20181025
  6. BISOPROLOL [Concomitant]
     Active Substance: BISOPROLOL
     Dosage: 2.5 MILLIGRAM DAILY;
     Route: 065
  7. DEXAMETHASONE. [Concomitant]
     Active Substance: DEXAMETHASONE
     Dosage: 500 MICROGRAM DAILY; MORNING
     Route: 065
  8. ADCAL-D3 [Concomitant]
     Active Substance: CALCIUM CARBONATE\CHOLECALCIFEROL
     Dosage: 1 DOSAGE FORMS DAILY; MORNING
     Route: 065
  9. LANSOPRAZOLE. [Concomitant]
     Active Substance: LANSOPRAZOLE
     Dosage: 30 MILLIGRAM DAILY;
     Route: 065
  10. LANTUS [Concomitant]
     Active Substance: INSULIN GLARGINE
  11. NOVORAPID [Concomitant]
     Active Substance: INSULIN ASPART
  12. ALENDRONIC ACID [Concomitant]
     Active Substance: ALENDRONIC ACID
     Route: 065
  13. FERROUS SULFATE. [Concomitant]
     Active Substance: FERROUS SULFATE
  14. CLOPIDOGREL [Concomitant]
     Active Substance: CLOPIDOGREL BISULFATE
     Dosage: 75 MILLIGRAM DAILY;
     Route: 065

REACTIONS (2)
  - Dehydration [Unknown]
  - Acute kidney injury [Recovering/Resolving]

NARRATIVE: CASE EVENT DATE: 20181025
